FAERS Safety Report 4939939-7 (Version None)
Quarter: 2006Q1

REPORT INFORMATION
  Report Type: 
  Country: None (occurrence: None)
  Receive Date: 20060310
  Receipt Date: 20040618
  Transmission Date: 20060701
  Serious: Yes (Hospitalization)
  Sender: FDA-Public Use
  Company Number: CZ-SANOFI-SYNTHELABO-D01200402

PATIENT
  Age: 69 Year
  Sex: Female
  Weight: 85 kg

DRUGS (12)
  1. FONDAPARINUX [Suspect]
     Indication: ACUTE CORONARY SYNDROME
     Dosage: 2.5MG PER DAY
     Route: 058
     Dates: start: 20040324, end: 20040331
  2. ANOPYRIN [Concomitant]
  3. ENOXAPARIN SODIUM [Concomitant]
     Route: 058
     Dates: end: 20040324
  4. DIAPREL [Concomitant]
  5. HELICID [Concomitant]
  6. INSULIN [Concomitant]
  7. NPH INSULIN [Concomitant]
  8. LESCOL XL [Concomitant]
  9. HYPOGLYCAEMIC MEDICATION [Concomitant]
     Route: 048
  10. PLAVIX [Concomitant]
  11. TRITACE [Concomitant]
  12. VASOCARDIN [Concomitant]

REACTIONS (1)
  - CATHETER RELATED COMPLICATION [None]
